FAERS Safety Report 19450199 (Version 1)
Quarter: 2021Q2

REPORT INFORMATION
  Report Type: Spontaneous
  Country: US (occurrence: US)
  Receive Date: 20210622
  Receipt Date: 20210622
  Transmission Date: 20210717
  Serious: Yes (Other)
  Sender: FDA-Public Use
  Company Number: US-PFIZER INC-2021683805

PATIENT
  Age: 64 Year
  Sex: Male

DRUGS (2)
  1. INLYTA [Suspect]
     Active Substance: AXITINIB
     Dosage: 5 MG
     Dates: start: 20210609
  2. INLYTA [Suspect]
     Active Substance: AXITINIB
     Dosage: 5 MG
     Dates: start: 20210526

REACTIONS (9)
  - Bradyphrenia [Unknown]
  - Fatigue [Unknown]
  - Dizziness [Unknown]
  - Gastrointestinal hypermotility [Unknown]
  - Blood pressure increased [Unknown]
  - Vision blurred [Unknown]
  - Diarrhoea [Unknown]
  - Mental impairment [Unknown]
  - Dehydration [Unknown]

NARRATIVE: CASE EVENT DATE: 2021
